FAERS Safety Report 20130483 (Version 2)
Quarter: 2021Q4

REPORT INFORMATION
  Report Type: Spontaneous
  Country: NL (occurrence: NL)
  Receive Date: 20211130
  Receipt Date: 20211202
  Transmission Date: 20220304
  Serious: Yes (Death, Hospitalization)
  Sender: FDA-Public Use
  Company Number: None

PATIENT
  Age: 64 Year
  Sex: Male
  Weight: 90 kg

DRUGS (20)
  1. METFORMIN [Suspect]
     Active Substance: METFORMIN HYDROCHLORIDE
     Indication: Product used for unknown indication
     Dosage: 1000 MILLIGRAM, BID (TAKE 1000 MG BY MOUTH 2 TIMES A DAY)
     Route: 048
  2. ASTRAZENECA COVID-19 VACCINE [Suspect]
     Active Substance: AZD-1222
     Indication: COVID-19 immunisation
     Dosage: 1 DOSAGE FORM
     Dates: start: 20210417
  3. NARATRIPTAN [Concomitant]
     Active Substance: NARATRIPTAN HYDROCHLORIDE
     Dosage: 2.5 MILLIGRAM (NEEM 2,5 MG IN VIA DE MOND ZONODIG 2)
  4. SIMVASTATIN [Concomitant]
     Active Substance: SIMVASTATIN
     Dosage: 40 MILLIGRAM (NEEM 40 MG IN VIA DE MOND ELKE AVOND.)
  5. LISINOPRIL [Concomitant]
     Active Substance: LISINOPRIL
     Dosage: NEEM 1 TABLET IN VIA DE MOND DAGELIJKS. 90 TABLET 4
  6. SPIRONOLACTONE [Concomitant]
     Active Substance: SPIRONOLACTONE
     Dosage: NEEM 1 TABLET IN VIA DE MOND DAGELIJKS. 90 TABLET 3
  7. RIVAROXABAN [Concomitant]
     Active Substance: RIVAROXABAN
     Dosage: NEEM 1 TABLET IN VIA DE MOND DAGELIJKS.
  8. ZOPICLONE [Concomitant]
     Active Substance: ZOPICLONE
     Dosage: 7.5 MILLIGRAM (NEEM 7,5 MG IN VIA DE MOND ELKE AVOND.)
  9. TEMAZEPAM [Concomitant]
     Active Substance: TEMAZEPAM
     Dosage: UNK
  10. CLOPIDOGREL [Concomitant]
     Active Substance: CLOPIDOGREL BISULFATE
     Dosage: UNK
  11. TAMSULOSINE                        /01280301/ [Concomitant]
     Dosage: 0.4 MILLIGRAM (NEEM  0,4MG IN VIA DE MOND DAGELIJKS)
  12. CARVEDILOL [Concomitant]
     Active Substance: CARVEDILOL
     Dosage: 25 MILLIGRAM (NEEM 25 MG IN VIA DE MOND 2 KEER PER DAG TIJDEN)
  13. FOLIC ACID [Concomitant]
     Active Substance: FOLIC ACID
     Dosage: 0.5 MILLIGRAM (NEEM 0,5 MG IN VIA DE MOND DAGELIJKS)
  14. THIAMINE [Concomitant]
     Active Substance: THIAMINE
     Dosage: NEEM 1 TABLET IN VIA DE MOND DAGELIJKS. 30 TABLET 0
  15. FUROSEMIDE [Concomitant]
     Active Substance: FUROSEMIDE
     Dosage: NEEM 1 TABLET IN VIA DE MOND DAGELIJKS. 90 TABLET 3
  16. VENLAFAXINE [Concomitant]
     Active Substance: VENLAFAXINE HYDROCHLORIDE
     Dosage: 300 MILLIGRAM (NEEM 300 MG IN VIA DE MOND DAGELIJKS.)
  17. DAPAGLIFLOZIN [Concomitant]
     Active Substance: DAPAGLIFLOZIN
     Dosage: EEM 1 TABLET IN VIA DE MOND  DAGELIJKS
  18. POLYETHYLENE GLYCOLS [Concomitant]
     Active Substance: POLYETHYLENE GLYCOLS
     Dosage: NEEM 1 SACHET IN VIA DE MOND ZONODIG 1 KEER PER DAG.
  19. OLANZAPINE [Concomitant]
     Active Substance: OLANZAPINE
     Dosage: 5 MILLIGRAM NEEM 5 MG IN VIA DE MOND DAGELIJKS.)
  20. DIAZEPAM [Concomitant]
     Active Substance: DIAZEPAM
     Dosage: NEEM 1 TABLET IN VIA DE MOND 3 KEER PER DAG. 30 TABLET 0

REACTIONS (4)
  - Hyperkalaemia [Fatal]
  - Cardiac arrest [Fatal]
  - Cardiac asthma [Fatal]
  - Malaise [Fatal]

NARRATIVE: CASE EVENT DATE: 20210418
